FAERS Safety Report 22588679 (Version 1)
Quarter: 2023Q2

REPORT INFORMATION
  Report Type: Spontaneous
  Country: US (occurrence: None)
  Receive Date: 20230608
  Receipt Date: 20230608
  Transmission Date: 20230722
  Serious: No
  Sender: FDA-Public Use
  Company Number: None

PATIENT
  Age: 53 Year
  Sex: Female
  Weight: 71.21 kg

DRUGS (11)
  1. TASIGNA [Suspect]
     Active Substance: NILOTINIB
     Indication: Gastrointestinal melanoma
     Dosage: FREQUENCY : TWICE A DAY;?
     Route: 048
  2. ATENOLOL [Concomitant]
  3. HYDROCORTISONE [Concomitant]
     Active Substance: HYDROCORTISONE
  4. LEVOTHYROXINE [Concomitant]
  5. LISINOPROL [Concomitant]
  6. MAGOX [Concomitant]
  7. MELOXICAM [Concomitant]
  8. OLANZAPINE [Concomitant]
  9. PEPCID [Concomitant]
     Active Substance: FAMOTIDINE
  10. PROCHLORPERAZINE [Concomitant]
  11. ZOFRAN [Concomitant]

REACTIONS (2)
  - Gastrointestinal melanoma [None]
  - Disease progression [None]
